FAERS Safety Report 4695203-5 (Version None)
Quarter: 2005Q2

REPORT INFORMATION
  Report Type: 
  Country: None (occurrence: None)
  Receive Date: 20050614
  Receipt Date: 20050113
  Transmission Date: 20051028
  Serious: No
  Sender: FDA-Public Use
  Company Number: USA050188514

PATIENT
  Age: 74 Year
  Sex: Male

DRUGS (4)
  1. CIALIS [Suspect]
     Dosage: 20 MG
  2. DIOVAN [Concomitant]
  3. DYNASURC [Concomitant]
  4. MOBIC [Concomitant]

REACTIONS (4)
  - PENILE PAIN [None]
  - PENIS DISORDER [None]
  - SCROTAL DISORDER [None]
  - SCROTAL PAIN [None]
